FAERS Safety Report 6365332-9 (Version None)
Quarter: 2009Q3

REPORT INFORMATION
  Report Type: 
  Country: None (occurrence: None)
  Receive Date: 20090919
  Receipt Date: 20090814
  Transmission Date: 20100115
  Serious: No
  Sender: FDA-Public Use
  Company Number: US-ABBOTT-09P-163-0591338-00

PATIENT
  Sex: Female
  Weight: 46.762 kg

DRUGS (3)
  1. HUMIRA [Suspect]
     Indication: RHEUMATOID ARTHRITIS
     Dates: start: 20090504, end: 20090604
  2. HUMIRA [Suspect]
     Dates: start: 20090712
  3. PREDNISONE [Concomitant]
     Indication: DRUG USE FOR UNKNOWN INDICATION
     Dates: start: 20090810

REACTIONS (2)
  - ARTHRALGIA [None]
  - INFLUENZA [None]
